FAERS Safety Report 20207891 (Version 1)
Quarter: 2021Q4

REPORT INFORMATION
  Report Type: Spontaneous
  Country: US (occurrence: None)
  Receive Date: 20211220
  Receipt Date: 20211220
  Transmission Date: 20220303
  Serious: Yes (Life-Threatening, Hospitalization)
  Sender: FDA-Public Use
  Company Number: None

PATIENT
  Age: 47 Year
  Sex: Male
  Weight: 63.9 kg

DRUGS (4)
  1. STELARA [Suspect]
     Active Substance: USTEKINUMAB
     Indication: Crohn^s disease
     Dosage: OTHER FREQUENCY : 8 WEEKS;?
     Route: 058
     Dates: start: 20211001, end: 20211126
  2. STELARA [Suspect]
     Active Substance: USTEKINUMAB
     Indication: Crohn^s disease
     Dosage: OTHER QUANTITY : 1 INJECTION(S);?OTHER FREQUENCY : 8 WEEKS;?
     Route: 058
     Dates: start: 20211001, end: 20211126
  3. CHOLESTYRAMINE [Concomitant]
     Active Substance: CHOLESTYRAMINE
  4. MULTI-VITAMINS [Concomitant]

REACTIONS (4)
  - Superficial vein thrombosis [None]
  - Superficial vein thrombosis [None]
  - Fatigue [None]
  - Jugular vein thrombosis [None]

NARRATIVE: CASE EVENT DATE: 20211011
